FAERS Safety Report 10109465 (Version 3)
Quarter: 2014Q4

REPORT INFORMATION
  Report Type: Report from Study
  Country: GB (occurrence: GB)
  Receive Date: 20140425
  Receipt Date: 20141103
  Transmission Date: 20150528
  Serious: Yes (Other)
  Sender: FDA-Public Use
  Company Number: GB-ROCHE-1389125

PATIENT
  Sex: Female

DRUGS (1)
  1. HERCEPTIN [Suspect]
     Active Substance: TRASTUZUMAB
     Indication: PRODUCT USED FOR UNKNOWN INDICATION
     Route: 058

REACTIONS (11)
  - Haemoptysis [Unknown]
  - Onychoclasis [Unknown]
  - Muscle spasms [Unknown]
  - Dyspnoea exertional [Unknown]
  - Dry skin [Unknown]
  - Lethargy [Unknown]
  - Fatigue [Unknown]
  - Sleep disorder [Unknown]
  - Pruritus [Unknown]
  - Insomnia [Unknown]
  - Depressed mood [Unknown]
